FAERS Safety Report 7047004-0 (Version None)
Quarter: 2010Q4

REPORT INFORMATION
  Report Type: 
  Country: None (occurrence: None)
  Receive Date: 20101012
  Receipt Date: 20101001
  Transmission Date: 20110411
  Serious: Yes (Other)
  Sender: FDA-Public Use
  Company Number: TUK2010A00271

PATIENT
  Age: 73 Year
  Sex: Male

DRUGS (10)
  1. ACTOS [Suspect]
     Indication: DIABETES MELLITUS
     Dosage: (30 MG) ORAL
     Route: 048
     Dates: start: 20080201
  2. ALLOPURINOL [Concomitant]
  3. ASPIRIN [Concomitant]
  4. ATENOLOL [Concomitant]
  5. CODEINE PHOSPHATE AND ACETAMINOPHEN [Concomitant]
  6. IRBESARTAN [Concomitant]
  7. ISMO [Concomitant]
  8. METFORMIN HCL [Concomitant]
  9. ROSIGLITAZONE [Concomitant]
  10. SIMVASTATIN [Concomitant]

REACTIONS (2)
  - BLADDER CANCER [None]
  - HAEMATURIA [None]
